FAERS Safety Report 6050701-7 (Version None)
Quarter: 2009Q1

REPORT INFORMATION
  Report Type: 
  Country: None (occurrence: None)
  Receive Date: 20090126
  Receipt Date: 20090114
  Transmission Date: 20090719
  Serious: Yes (Hospitalization)
  Sender: FDA-Public Use
  Company Number: US-PFIZER INC-2008100199

PATIENT
  Sex: Female
  Weight: 51.3 kg

DRUGS (19)
  1. SUNITINIB MALATE [Suspect]
     Indication: COLORECTAL CANCER
     Dosage: 37.5 MG, 1X/DAY
     Route: 048
     Dates: start: 20081015
  2. OXALIPLATIN [Suspect]
     Indication: COLORECTAL CANCER
     Dosage: 132 MG, EVERY 2 WEEKS
     Route: 042
     Dates: start: 20081015
  3. FLUOROURACIL [Suspect]
     Indication: COLORECTAL CANCER
     Dosage: 620 MG, BOLUS, EVERY 2 WEEKS
     Route: 042
     Dates: start: 20081015
  4. FLUOROURACIL [Suspect]
     Dosage: 3720 MG, INFUSION, EVERY 2 WEEKS
     Route: 042
     Dates: start: 20081015
  5. CALCIUM FOLINATE [Suspect]
     Indication: COLORECTAL CANCER
     Dosage: 620 MG, EVERY 2 WEEKS
     Route: 042
     Dates: start: 20081015
  6. GLUCOPHAGE [Concomitant]
     Indication: DIABETES MELLITUS
     Dosage: 10 MG, 2X/DAY
     Dates: start: 20050309
  7. METFORMIN HCL [Concomitant]
     Indication: DIABETES MELLITUS
     Dosage: 500 MG, 2X/DAY
     Dates: start: 20041230
  8. DIGITEK [Concomitant]
     Indication: ATRIAL TACHYCARDIA
     Dosage: 0.25 MG, 1X/DAY
     Dates: start: 19930101
  9. ACCOLATE [Concomitant]
     Indication: ASTHMA
  10. PREDNISONE [Concomitant]
     Indication: ASTHMA
     Dosage: 5 MG, 1X/DAY
     Dates: start: 20031218
  11. ATROVENT [Concomitant]
     Indication: ASTHMA
     Dosage: 2 PUFFS, 2X/DAY
     Dates: start: 19830101
  12. SPIRIVA [Concomitant]
     Indication: ASTHMA
     Dosage: 18 UG, 1X/DAY
     Dates: start: 19830101
  13. LIPITOR [Concomitant]
     Dosage: 10 MG, 1X/DAY
     Dates: start: 20050101
  14. ZOFRAN [Concomitant]
     Indication: PROPHYLAXIS
     Dosage: 8 MG, 2X/DAY
     Dates: start: 20081015
  15. COMPAZINE [Concomitant]
     Indication: PROPHYLAXIS
     Dosage: 10 MG, 2X/DAY
     Dates: start: 20081015
  16. SYNTHROID [Concomitant]
     Indication: HYPOTHYROIDISM
     Dosage: 25 UG, 1X/DAY
     Dates: start: 20081101
  17. MEGACE [Concomitant]
     Indication: ANOREXIA
     Dosage: 20 ML, 3X/DAY
     Dates: start: 20080919
  18. ACTONEL [Concomitant]
     Indication: OSTEOPOROSIS
     Dosage: 150 MG, MONTHLY
     Dates: start: 20081101
  19. ASPIRIN [Concomitant]
     Indication: ATRIAL TACHYCARDIA
     Dosage: 81 MG, 1X/DAY
     Dates: start: 20041201

REACTIONS (4)
  - DYSPNOEA [None]
  - HAEMOPTYSIS [None]
  - PANCYTOPENIA [None]
  - PLEURITIC PAIN [None]
